FAERS Safety Report 6218470-5 (Version None)
Quarter: 2009Q2

REPORT INFORMATION
  Report Type: 
  Country: None (occurrence: None)
  Receive Date: 20090608
  Receipt Date: 20090605
  Transmission Date: 20091009
  Serious: Yes (Hospitalization)
  Sender: FDA-Public Use
  Company Number: B0573783A

PATIENT
  Sex: Male
  Weight: 56 kg

DRUGS (10)
  1. ARIXTRA [Suspect]
     Indication: DEEP VEIN THROMBOSIS
     Dosage: 7.5MG PER DAY
     Route: 058
     Dates: start: 20090211, end: 20090213
  2. PREVISCAN [Suspect]
     Indication: DEEP VEIN THROMBOSIS
     Dosage: 10MG PER DAY
     Route: 048
     Dates: start: 20090211, end: 20090213
  3. EPITOMAX [Concomitant]
     Dosage: 200MG PER DAY
     Route: 048
  4. ALEPSAL [Concomitant]
     Dosage: 100MG PER DAY
     Route: 048
  5. DAFALGAN [Concomitant]
     Dosage: 3G PER DAY
     Route: 048
  6. NEXIUM [Concomitant]
     Dosage: 20MG PER DAY
     Route: 048
  7. JOSIR [Concomitant]
     Dosage: .4MG PER DAY
     Route: 048
  8. KEPPRA [Concomitant]
     Dosage: 3UNIT PER DAY
     Route: 048
  9. LYRICA [Concomitant]
     Dosage: 300MG PER DAY
     Route: 048
  10. URBANYL [Concomitant]
     Dosage: 15MG PER DAY
     Route: 048

REACTIONS (4)
  - HAEMATOMA [None]
  - INDURATION [None]
  - JOINT DISLOCATION [None]
  - SHOULDER DEFORMITY [None]
